FAERS Safety Report 19611335 (Version 1)
Quarter: 2021Q3

REPORT INFORMATION
  Report Type: Spontaneous
  Country: BE (occurrence: BE)
  Receive Date: 20210726
  Receipt Date: 20210726
  Transmission Date: 20211014
  Serious: Yes (Life-Threatening)
  Sender: FDA-Public Use
  Company Number: BE-MYLANLABS-2021M1044674

PATIENT
  Age: 23 Year
  Sex: Male

DRUGS (1)
  1. ADALIMUMAB [Suspect]
     Active Substance: ADALIMUMAB
     Indication: CROHN^S DISEASE
     Dosage: UNK

REACTIONS (1)
  - Drug ineffective [Unknown]
